FAERS Safety Report 8014615-5 (Version None)
Quarter: 2011Q4

REPORT INFORMATION
  Report Type: 
  Country: None (occurrence: None)
  Receive Date: 20111229
  Receipt Date: 20111216
  Transmission Date: 20120403
  Serious: Yes (Hospitalization)
  Sender: FDA-Public Use
  Company Number: TR-MEDIMMUNE-MEDI-0014268

PATIENT
  Sex: Male
  Weight: 4.04 kg

DRUGS (1)
  1. SYNAGIS [Suspect]
     Route: 030
     Dates: start: 20111028, end: 20111028

REACTIONS (5)
  - COUGH [None]
  - DISCOMFORT [None]
  - WEIGHT DECREASED [None]
  - INSOMNIA [None]
  - DYSPNOEA [None]
